FAERS Safety Report 5654096-X (Version None)
Quarter: 2008Q1

REPORT INFORMATION
  Report Type: 
  Country: None (occurrence: None)
  Receive Date: 20080206
  Receipt Date: 20070718
  Transmission Date: 20080703
  Serious: Yes (Other)
  Sender: FDA-Public Use
  Company Number: US200707004409

PATIENT
  Sex: Female

DRUGS (1)
  1. EVISTA [Suspect]
     Indication: BREAST CANCER
     Dosage: 60 MG, DAILY (1/D), ORAL
     Route: 048
     Dates: start: 20070501

REACTIONS (3)
  - MUSCLE SPASMS [None]
  - THROMBOSIS [None]
  - VAGINAL HAEMORRHAGE [None]
